FAERS Safety Report 11178331 (Version 1)
Quarter: 2015Q2

REPORT INFORMATION
  Report Type: Spontaneous
  Country: US (occurrence: None)
  Receive Date: 20150515
  Receipt Date: 20150515
  Transmission Date: 20150821
  Serious: Yes (Hospitalization)
  Sender: FDA-Public Use
  Company Number: 2014004057

PATIENT
  Age: 69 Year
  Sex: Female
  Weight: 108 kg

DRUGS (5)
  1. ATIVAN [Concomitant]
     Active Substance: LORAZEPAM
  2. PREDNISONE (PREDNISONE ACETATE) [Concomitant]
  3. CIMZIA [Suspect]
     Active Substance: CERTOLIZUMAB PEGOL
     Route: 058
     Dates: start: 20140609, end: 20140623
  4. SYNTHROID [Concomitant]
     Active Substance: LEVOTHYROXINE SODIUM
  5. ASACOL [Concomitant]
     Active Substance: MESALAMINE

REACTIONS (7)
  - Swelling face [None]
  - Urticaria [None]
  - Pruritus [None]
  - Muscular weakness [None]
  - Blood pressure increased [None]
  - Lip swelling [None]
  - Diplopia [None]

NARRATIVE: CASE EVENT DATE: 20140610
